FAERS Safety Report 10025761 (Version 1)
Quarter: 2014Q1

REPORT INFORMATION
  Report Type: Spontaneous
  Country: BR (occurrence: BR)
  Receive Date: 20140320
  Receipt Date: 20140320
  Transmission Date: 20141002
  Serious: Yes (Other)
  Sender: FDA-Public Use
  Company Number: BR-PFIZER INC-2014077896

PATIENT
  Age: 68 Year
  Sex: Male
  Weight: 86 kg

DRUGS (3)
  1. LYRICA [Suspect]
     Dosage: 150MG (TWO TABLETS OF 75MG) IN THE MORNING, 75MG IN THE AFTERNOON, AND 150MG (2 X 75MG) AT NIGHT
     Route: 048
     Dates: start: 20100209
  2. CRESTOR [Concomitant]
     Indication: BLOOD CHOLESTEROL
     Dosage: 1 DF, 1X/DAY (ONE TABLET DAILY)
     Dates: start: 2013
  3. DIAZEPAM [Concomitant]
     Indication: MUSCLE RELAXANT THERAPY
     Dosage: A QUARTER OF A TABLET AS NEEDED
     Dates: start: 2012

REACTIONS (4)
  - Serratia infection [Unknown]
  - Muscle contractions involuntary [Unknown]
  - Pain [Unknown]
  - Burning sensation [Unknown]
